FAERS Safety Report 7529497-5 (Version None)
Quarter: 2011Q2

REPORT INFORMATION
  Report Type: 
  Country: None (occurrence: None)
  Receive Date: 20110607
  Receipt Date: 20050715
  Transmission Date: 20111010
  Serious: Yes (Death)
  Sender: FDA-Public Use
  Company Number: PHEH2005US07129

PATIENT
  Sex: Female

DRUGS (6)
  1. SYNTHROID [Concomitant]
     Dosage: 0.1 MG, QD
  2. DEPAKOTE [Concomitant]
     Dosage: 500 MG, BID
     Dates: start: 20000101
  3. DITROPAN /USA/ [Concomitant]
     Dosage: 5 MG, TID
  4. CLOZARIL [Suspect]
     Dosage: 25MG QAM, 100MG QHS
     Route: 048
  5. IMODIUM [Concomitant]
     Dosage: 2 MG, BID
  6. MULTI-VITAMINS [Concomitant]

REACTIONS (1)
  - MYOCARDIAL INFARCTION [None]
